FAERS Safety Report 24621175 (Version 1)
Quarter: 2024Q4

REPORT INFORMATION
  Report Type: Spontaneous
  Country: US (occurrence: US)
  Receive Date: 20241114
  Receipt Date: 20241114
  Transmission Date: 20250115
  Serious: Yes (Other)
  Sender: TEVA
  Company Number: US-TEVA-VS-3262767

PATIENT
  Age: 62 Year
  Sex: Male

DRUGS (2)
  1. COPAXONE [Suspect]
     Active Substance: GLATIRAMER ACETATE
     Indication: Product used for unknown indication
     Route: 065
  2. AUBAGIO [Suspect]
     Active Substance: TERIFLUNOMIDE
     Indication: Product used for unknown indication
     Route: 065

REACTIONS (16)
  - Glaucoma [Unknown]
  - Back disorder [Unknown]
  - Dysarthria [Unknown]
  - Decreased appetite [Unknown]
  - Optic nerve injury [Unknown]
  - Depression [Unknown]
  - Memory impairment [Unknown]
  - Ligament sprain [Unknown]
  - Initial insomnia [Unknown]
  - Back pain [Unknown]
  - Gait disturbance [Unknown]
  - Disturbance in attention [Unknown]
  - Tremor [Unknown]
  - Visual impairment [Unknown]
  - Muscle twitching [Unknown]
  - Pain [Unknown]

NARRATIVE: CASE EVENT DATE: 20220101
